FAERS Safety Report 21015876 (Version 1)
Quarter: 2022Q2

REPORT INFORMATION
  Report Type: Spontaneous
  Country: DE (occurrence: DE)
  Receive Date: 20220628
  Receipt Date: 20220628
  Transmission Date: 20220721
  Serious: Yes (Death)
  Sender: FDA-Public Use
  Company Number: DE-STRIDES ARCOLAB LIMITED-2022SP007755

PATIENT
  Sex: Male

DRUGS (3)
  1. ETOPOSIDE [Suspect]
     Active Substance: ETOPOSIDE
     Indication: Testis cancer
     Dosage: UNK (SINGLE DOSE)
     Route: 065
  2. CISPLATIN [Suspect]
     Active Substance: CISPLATIN
     Indication: Testis cancer
     Dosage: UNK (SINGLE DOSE)
     Route: 065
  3. BLEOMYCIN [Suspect]
     Active Substance: BLEOMYCIN SULFATE
     Indication: Testis cancer
     Dosage: UNK (SINGLE DOSE)
     Route: 065

REACTIONS (2)
  - Intestinal ischaemia [Fatal]
  - Off label use [Unknown]
